FAERS Safety Report 15636273 (Version 1)
Quarter: 2018Q4

REPORT INFORMATION
  Report Type: Other
  Country: NL (occurrence: NL)
  Receive Date: 20181120
  Receipt Date: 20181120
  Transmission Date: 20190205
  Serious: Yes (Death, Hospitalization, Other)
  Sender: FDA-Public Use
  Company Number: NL-APOTEX-2018AP024773

PATIENT
  Age: 73 Year
  Sex: Female

DRUGS (3)
  1. RITUXIMAB. [Suspect]
     Active Substance: RITUXIMAB
     Indication: PEMPHIGOID
     Dosage: 500 MG, UNK (ON DAYS 1 AND 15)
     Route: 065
  2. PREDNISOLONE. [Concomitant]
     Active Substance: PREDNISOLONE
     Indication: PEMPHIGOID
     Dosage: 7.5 MG/KG, UNK
     Route: 065
  3. MYCOPHENOLATE [Suspect]
     Active Substance: MYCOPHENOLIC ACID
     Indication: PEMPHIGOID
     Dosage: UNK
     Route: 065

REACTIONS (11)
  - Off label use [Fatal]
  - Urinary tract infection [Unknown]
  - Death [Fatal]
  - Loss of consciousness [Unknown]
  - Diarrhoea [Unknown]
  - Multiple organ dysfunction syndrome [Fatal]
  - Neutropenia [Fatal]
  - Leukopenia [Unknown]
  - Product use in unapproved indication [Fatal]
  - Sepsis [Fatal]
  - Drug ineffective [Unknown]
